FAERS Safety Report 15193031 (Version 1)
Quarter: 2018Q3

REPORT INFORMATION
  Report Type: Spontaneous
  Country: US (occurrence: US)
  Receive Date: 20180725
  Receipt Date: 20180725
  Transmission Date: 20181010
  Serious: No
  Sender: FDA-Public Use
  Company Number: US-TEVA-796522USA

PATIENT
  Sex: Male

DRUGS (1)
  1. RASAGILINE. [Suspect]
     Active Substance: RASAGILINE
     Indication: PARKINSON^S DISEASE
     Route: 065

REACTIONS (2)
  - Balance disorder [Unknown]
  - Drug ineffective [Unknown]
